FAERS Safety Report 4408418-8 (Version None)
Quarter: 2004Q3

REPORT INFORMATION
  Report Type: 
  Country: None (occurrence: None)
  Receive Date: 20040726
  Receipt Date: 20040726
  Transmission Date: 20050211
  Serious: Yes (Other)
  Sender: FDA-Public Use
  Company Number: None

PATIENT
  Sex: Female
  Weight: 99.7913 kg

DRUGS (11)
  1. FLUTAMIDE [Suspect]
     Indication: ANDROGENS INCREASED
     Dosage: 250 MG BID PO
     Route: 048
     Dates: start: 20040712
  2. LIPITOR [Concomitant]
  3. MICRONOR [Concomitant]
  4. GLUCOPHAGE [Concomitant]
  5. ASPIRIN [Concomitant]
  6. TUMS [Concomitant]
  7. MULTI-VIT [Concomitant]
  8. CELEBREX [Concomitant]
  9. VIT E [Concomitant]
  10. CLARITIN [Concomitant]
  11. ACIPHEX [Concomitant]

REACTIONS (4)
  - HYPERHIDROSIS [None]
  - RETCHING [None]
  - SNEEZING [None]
  - VOMITING [None]
